FAERS Safety Report 6380190-4 (Version None)
Quarter: 2009Q3

REPORT INFORMATION
  Report Type: 
  Country: None (occurrence: None)
  Receive Date: 20090929
  Receipt Date: 20090921
  Transmission Date: 20100115
  Serious: Yes (Other)
  Sender: FDA-Public Use
  Company Number: US-ELI_LILLY_AND_COMPANY-US200909004660

PATIENT
  Sex: Female

DRUGS (3)
  1. HUMALOG [Suspect]
     Dosage: 4 U, 3/D
     Route: 058
     Dates: start: 20040101
  2. GLUCOPHAGE [Concomitant]
  3. METFORMIN HCL [Concomitant]
     Dosage: 1000 MG, 2/D

REACTIONS (6)
  - BLOOD GLUCOSE INCREASED [None]
  - CATARACT OPERATION [None]
  - DRUG INEFFECTIVE [None]
  - EYE HAEMORRHAGE [None]
  - VISUAL ACUITY REDUCED [None]
  - VITRECTOMY [None]
